FAERS Safety Report 6110385-6 (Version None)
Quarter: 2009Q1

REPORT INFORMATION
  Report Type: 
  Country: None (occurrence: None)
  Receive Date: 20090310
  Receipt Date: 20090302
  Transmission Date: 20090719
  Serious: Yes (Hospitalization)
  Sender: FDA-Public Use
  Company Number: NL-SANOFI-SYNTHELABO-A01200901725

PATIENT
  Sex: Female
  Weight: 55 kg

DRUGS (4)
  1. THALIDOMIDE [Suspect]
     Dosage: 100MG / 50MG
     Route: 065
     Dates: start: 20080910, end: 20090126
  2. AZATHIOPRINE [Suspect]
     Indication: SYSTEMIC LUPUS ERYTHEMATOSUS
     Dosage: 50 MG
     Route: 048
     Dates: start: 20070101, end: 20090126
  3. PREDNISOLONE [Suspect]
     Indication: SYSTEMIC LUPUS ERYTHEMATOSUS
     Dosage: 30 MG
     Route: 048
     Dates: start: 20050101
  4. PLAQUENIL [Suspect]
     Indication: SYSTEMIC LUPUS ERYTHEMATOSUS
     Route: 048
     Dates: start: 19980101, end: 20090126

REACTIONS (1)
  - VARICELLA [None]
